FAERS Safety Report 24681088 (Version 2)
Quarter: 2025Q1

REPORT INFORMATION
  Report Type: Spontaneous
  Country: US (occurrence: US)
  Receive Date: 20241129
  Receipt Date: 20250101
  Transmission Date: 20250409
  Serious: No
  Sender: SANOFI AVENTIS
  Company Number: US-SA-2024SA349541

PATIENT
  Sex: Female

DRUGS (2)
  1. MULTAQ [Suspect]
     Active Substance: DRONEDARONE
     Indication: Product used for unknown indication
     Dosage: 400 MG, BID
     Dates: start: 20231023, end: 202402
  2. MULTAQ [Suspect]
     Active Substance: DRONEDARONE
     Dates: start: 20240418, end: 2024

REACTIONS (3)
  - Swelling [Recovering/Resolving]
  - Renal disorder [Unknown]
  - Rash [Recovering/Resolving]

NARRATIVE: CASE EVENT DATE: 20240201
